FAERS Safety Report 8855103 (Version 1)
Quarter: 2012Q4

REPORT INFORMATION
  Report Type: 
  Country: US (occurrence: US)
  Receive Date: 20121023
  Receipt Date: 20121023
  Transmission Date: 20130627
  Serious: No
  Sender: FDA-Public Use
  Company Number: US-ASTRAZENECA-2012SE78244

PATIENT
  Sex: Female

DRUGS (1)
  1. NEXIUM [Suspect]
     Indication: IMPAIRED GASTRIC EMPTYING
     Dosage: UNKNOWN MILLIGRAMS
     Route: 048
     Dates: start: 201202

REACTIONS (3)
  - Dyspepsia [Unknown]
  - Nausea [Unknown]
  - Off label use [Unknown]
